FAERS Safety Report 6572484-4 (Version None)
Quarter: 2010Q1

REPORT INFORMATION
  Report Type: 
  Country: None (occurrence: None)
  Receive Date: 20100202
  Receipt Date: 20091216
  Transmission Date: 20100710
  Serious: Yes (Hospitalization, Other)
  Sender: FDA-Public Use
  Company Number: 20091216CINRY1309

PATIENT
  Age: 46 Year
  Sex: Male

DRUGS (2)
  1. CINRYZE [Suspect]
     Indication: HEREDITARY ANGIOEDEMA
     Dosage: (1000 UNIT, 1 IN 3 D), INTRAVENOUS
     Route: 042
     Dates: start: 20080601
  2. CINRYZE [Suspect]
     Indication: PROPHYLAXIS
     Dosage: (1000 UNIT, 1 IN 3 D), INTRAVENOUS
     Route: 042
     Dates: start: 20080601

REACTIONS (5)
  - BACTERIAL INFECTION [None]
  - BLOOD CULTURE POSITIVE [None]
  - DEVICE RELATED INFECTION [None]
  - INCORRECT STORAGE OF DRUG [None]
  - ROAD TRAFFIC ACCIDENT [None]
